FAERS Safety Report 23481015 (Version 7)
Quarter: 2025Q3

REPORT INFORMATION
  Report Type: Report from Study
  Country: US (occurrence: US)
  Receive Date: 20240205
  Receipt Date: 20250815
  Transmission Date: 20251021
  Serious: Yes (Other)
  Sender: TAKEDA
  Company Number: US-TAKEDA-2021TUS066828

PATIENT
  Age: 56 Year
  Sex: Male

DRUGS (11)
  1. BRIGATINIB [Suspect]
     Active Substance: BRIGATINIB
     Indication: Lung neoplasm malignant
     Dosage: 90 MILLIGRAM, QD
     Dates: start: 20211023
  2. BRIGATINIB [Suspect]
     Active Substance: BRIGATINIB
     Dosage: 180 MILLIGRAM, QD
     Dates: start: 20211027
  3. BRIGATINIB [Suspect]
     Active Substance: BRIGATINIB
     Dosage: 180 MILLIGRAM, QD
     Dates: start: 20211108
  4. BRIGATINIB [Suspect]
     Active Substance: BRIGATINIB
     Dosage: 180 MILLIGRAM, QD
  5. BRIGATINIB [Suspect]
     Active Substance: BRIGATINIB
     Dosage: 180 MILLIGRAM, QD
  6. BRIGATINIB [Suspect]
     Active Substance: BRIGATINIB
     Dosage: 180 MILLIGRAM, QD
     Dates: start: 20211027
  7. BRIGATINIB [Suspect]
     Active Substance: BRIGATINIB
     Dosage: 180 MILLIGRAM, QD
     Dates: start: 20211027
  8. BRIGATINIB [Suspect]
     Active Substance: BRIGATINIB
     Dosage: 180 MILLIGRAM, QD
  9. BRIGATINIB [Suspect]
     Active Substance: BRIGATINIB
     Dosage: 180 MILLIGRAM, QD
  10. BRIGATINIB [Suspect]
     Active Substance: BRIGATINIB
     Dosage: 180 MILLIGRAM, QD
  11. BRIGATINIB [Suspect]
     Active Substance: BRIGATINIB
     Dosage: 180 MILLIGRAM, QD

REACTIONS (46)
  - Neuropathy peripheral [Unknown]
  - Hernia [Unknown]
  - Bone cancer metastatic [Unknown]
  - Crying [Unknown]
  - Pleural effusion [Recovered/Resolved]
  - Gait disturbance [Unknown]
  - Muscle injury [Unknown]
  - Weight increased [Unknown]
  - Epistaxis [Unknown]
  - Oral herpes [Unknown]
  - Facial pain [Unknown]
  - Skin infection [Unknown]
  - Haemoptysis [Unknown]
  - Skin discomfort [Unknown]
  - Blood glucose abnormal [Unknown]
  - Costochondral separation [Unknown]
  - Neck pain [Unknown]
  - COVID-19 [Recovered/Resolved]
  - Bone lesion [Unknown]
  - Hypersensitivity [Unknown]
  - Product dose omission in error [Unknown]
  - Anxiety [Unknown]
  - Acne [Unknown]
  - Sleep disorder [Unknown]
  - Herpes simplex [Unknown]
  - Hunger [Unknown]
  - Rash macular [Unknown]
  - Drug eruption [Unknown]
  - Fatigue [Unknown]
  - Headache [Unknown]
  - Blood pressure increased [Recovering/Resolving]
  - Muscle spasms [Unknown]
  - Myalgia [Unknown]
  - Photosensitivity reaction [Unknown]
  - Blood cholesterol increased [Unknown]
  - Musculoskeletal stiffness [Unknown]
  - Stomatitis [Unknown]
  - Abdominal distension [Unknown]
  - Diarrhoea [Unknown]
  - Pain in extremity [Unknown]
  - Dyspnoea [Unknown]
  - Urticaria [Unknown]
  - Hypertension [Unknown]
  - Abdominal discomfort [Unknown]
  - Hypoaesthesia [Unknown]
  - Asthenia [Unknown]

NARRATIVE: CASE EVENT DATE: 20211025
